FAERS Safety Report 9775914 (Version 1)
Quarter: 2013Q4

REPORT INFORMATION
  Report Type: Spontaneous
  Country: DE (occurrence: DE)
  Receive Date: 20131220
  Receipt Date: 20131220
  Transmission Date: 20140711
  Serious: Yes (Other)
  Sender: FDA-Public Use
  Company Number: DE-GLAXOSMITHKLINE-D0081459A

PATIENT
  Sex: Female

DRUGS (1)
  1. DUAC AKNE GEL [Suspect]
     Indication: ACNE
     Route: 061
     Dates: start: 201307, end: 201307

REACTIONS (7)
  - Laryngeal oedema [Recovered/Resolved]
  - Swelling face [Recovered/Resolved]
  - Erythema [Recovered/Resolved]
  - Face oedema [Recovered/Resolved]
  - Rash [Recovered/Resolved]
  - Hypersensitivity [Not Recovered/Not Resolved]
  - Dermatitis contact [Recovered/Resolved]
